FAERS Safety Report 7724145-3 (Version None)
Quarter: 2011Q3

REPORT INFORMATION
  Report Type: 
  Country: None (occurrence: None)
  Receive Date: 20110901
  Receipt Date: 20110510
  Transmission Date: 20111222
  Serious: No
  Sender: FDA-Public Use
  Company Number: US-BAYER-2011-040935

PATIENT
  Sex: Female

DRUGS (2)
  1. MIRENA [Suspect]
     Dosage: UNK
  2. MIRENA [Suspect]
     Dosage: UNK

REACTIONS (2)
  - DEVICE EXPULSION [None]
  - MUSCLE SPASMS [None]
